FAERS Safety Report 23920826 (Version 1)
Quarter: 2024Q2

REPORT INFORMATION
  Report Type: Spontaneous
  Country: DK (occurrence: DK)
  Receive Date: 20240530
  Receipt Date: 20240530
  Transmission Date: 20240716
  Serious: Yes (Hospitalization, Other)
  Sender: FDA-Public Use
  Company Number: DK-DKMA-30730285

PATIENT

DRUGS (1)
  1. RIVAROXABAN [Suspect]
     Active Substance: RIVAROXABAN
     Indication: Atrial fibrillation
     Dosage: 15 MILLIGRAM, QD (FILM-COATED TABLET)
     Route: 048
     Dates: start: 20170718, end: 202404

REACTIONS (3)
  - Cerebral haemorrhage [Recovered/Resolved with Sequelae]
  - Hemiparesis [Unknown]
  - Aphasia [Unknown]

NARRATIVE: CASE EVENT DATE: 20240401
